FAERS Safety Report 10309086 (Version 5)
Quarter: 2014Q4

REPORT INFORMATION
  Report Type: Report from Study
  Country: US (occurrence: US)
  Receive Date: 20140716
  Receipt Date: 20141001
  Transmission Date: 20150528
  Serious: Yes (Life-Threatening, Hospitalization)
  Sender: FDA-Public Use
  Company Number: US-ACTELION-A-NJ2014-102128

PATIENT
  Age: 56 Year
  Sex: Male
  Weight: 79.3 kg

DRUGS (18)
  1. AMIODARONE [Suspect]
     Active Substance: AMIODARONE
     Dosage: 200 MG, QD
     Route: 065
  2. COUMADIN [Concomitant]
     Active Substance: WARFARIN SODIUM
     Dosage: 4 MG, QD
  3. CELEBREX [Concomitant]
     Active Substance: CELECOXIB
     Dosage: 200 MG, QD
  4. PRILOSEC [Concomitant]
     Active Substance: OMEPRAZOLE MAGNESIUM
     Dosage: 40 MG, QD
  5. FAMOTIDINE. [Concomitant]
     Active Substance: FAMOTIDINE
     Dosage: 20 MG, QD
     Route: 048
  6. TRACLEER [Suspect]
     Active Substance: BOSENTAN\BOSENTAN MONOHYDRATE
     Indication: COR PULMONALE CHRONIC
     Dosage: 125 MG, BID
     Route: 048
  7. DIGOXIN. [Suspect]
     Active Substance: DIGOXIN
     Indication: ATRIAL FIBRILLATION
     Dosage: 0.125 MG, BID
     Route: 065
     Dates: start: 20140721
  8. TORSEMIDE. [Concomitant]
     Active Substance: TORSEMIDE
     Dosage: 50 MG, BID
  9. COLCHICINE. [Concomitant]
     Active Substance: COLCHICINE
     Dosage: 0.6 MG, QD
  10. LIDOCAINE. [Concomitant]
     Active Substance: LIDOCAINE
     Dosage: 20 MG, UNK
  11. POTASSIUM CHLORIDE. [Concomitant]
     Active Substance: POTASSIUM CHLORIDE
  12. AMIODARONE [Suspect]
     Active Substance: AMIODARONE
     Indication: ATRIAL FIBRILLATION
     Dosage: 400 MG, BID
     Route: 065
     Dates: start: 20140721
  13. LASIX [Concomitant]
     Active Substance: FUROSEMIDE
     Dosage: 80 MG, BID
  14. ACETAMINOPHEN. [Concomitant]
     Active Substance: ACETAMINOPHEN
     Dosage: 500 MG, Q6HRS
     Route: 048
  15. DOCUSATE [Concomitant]
     Active Substance: DOCUSATE
     Dosage: 100 MG, BID
     Route: 048
  16. SPIRONOLACTONE. [Concomitant]
     Active Substance: SPIRONOLACTONE
     Dosage: 25 MG, QD
  17. ADCIRCA [Concomitant]
     Active Substance: TADALAFIL
     Dosage: 40 MG, QD
  18. TRAMADOL [Concomitant]
     Active Substance: TRAMADOL

REACTIONS (18)
  - Dyspnoea [Not Recovered/Not Resolved]
  - Hepatojugular reflux [Unknown]
  - Fatigue [Recovering/Resolving]
  - Memory impairment [Unknown]
  - Palpitations [Recovering/Resolving]
  - Encephalopathy [Recovered/Resolved]
  - Atrial fibrillation [Recovering/Resolving]
  - Ventricular tachycardia [Unknown]
  - Oedema [Recovering/Resolving]
  - Cardiac arrest [Recovered/Resolved]
  - Ventricular fibrillation [Recovering/Resolving]
  - Fluid overload [Recovering/Resolving]
  - Jugular vein distension [Unknown]
  - Arthralgia [Recovered/Resolved]
  - Nodal rhythm [Unknown]
  - Tachycardia [Unknown]
  - Bradycardia [Recovered/Resolved]
  - Pain in extremity [Recovered/Resolved]

NARRATIVE: CASE EVENT DATE: 201407
